FAERS Safety Report 10686196 (Version 1)
Quarter: 2014Q4

REPORT INFORMATION
  Report Type: Spontaneous
  Country: US (occurrence: US)
  Receive Date: 20141231
  Receipt Date: 20141231
  Transmission Date: 20150529
  Serious: No
  Sender: FDA-Public Use
  Company Number: US-PFIZER INC-2014360569

PATIENT
  Age: 69 Year
  Sex: Female
  Weight: 61 kg

DRUGS (12)
  1. ASPIRIN. [Suspect]
     Active Substance: ASPIRIN
     Indication: PAIN IN EXTREMITY
     Dosage: UNK
     Dates: start: 20140820, end: 2014
  2. TRAUMEEL S [Suspect]
     Active Substance: HOMEOPATHICS
     Indication: PAIN IN EXTREMITY
     Dosage: UNK
  3. CORTISONE [Concomitant]
     Active Substance: CORTISONE\HYDROCORTISONE
     Dosage: UNK
     Dates: start: 20141028
  4. ASPERCREME NOS [Suspect]
     Active Substance: MENTHOL\TROLAMINE SALICYLATE
     Indication: PAIN IN EXTREMITY
     Dosage: UNK
  5. IBUPROFEN. [Suspect]
     Active Substance: IBUPROFEN
     Indication: PAIN IN EXTREMITY
     Dosage: 800 MG, 2X/DAY - 3X/DAY
     Route: 048
  6. ICY HOT [Suspect]
     Active Substance: MENTHOL\METHYL SALICYLATE
     Indication: PAIN IN EXTREMITY
     Dosage: UNK
  7. LEVOTHYROXINE [Concomitant]
     Active Substance: LEVOTHYROXINE
     Indication: THYROID DISORDER
     Dosage: 112 MCG, 1X/DAY (IN THE MORNING)
     Route: 048
  8. ADVIL [Suspect]
     Active Substance: IBUPROFEN
     Indication: PAIN IN EXTREMITY
     Dosage: UNK
     Dates: start: 2014, end: 2014
  9. ALEVE [Suspect]
     Active Substance: NAPROXEN SODIUM
     Indication: PAIN IN EXTREMITY
     Dosage: UNK
     Dates: start: 2014, end: 2014
  10. TYLENOL [Suspect]
     Active Substance: ACETAMINOPHEN
     Indication: PAIN IN EXTREMITY
     Dosage: UNK
     Dates: start: 20140820, end: 2014
  11. BIOFREEZE [Suspect]
     Active Substance: MENTHOL
     Indication: PAIN IN EXTREMITY
     Dosage: UNK
  12. SERTRALINE [Concomitant]
     Active Substance: SERTRALINE HYDROCHLORIDE
     Indication: DEPRESSION
     Dosage: 1 DF, DAILY
     Route: 048

REACTIONS (2)
  - Drug ineffective [Not Recovered/Not Resolved]
  - Arthritis [Not Recovered/Not Resolved]

NARRATIVE: CASE EVENT DATE: 201408
